FAERS Safety Report 8101687-2 (Version None)
Quarter: 2012Q1

REPORT INFORMATION
  Report Type: 
  Country: None (occurrence: None)
  Receive Date: 20120129
  Receipt Date: 20110926
  Transmission Date: 20120608
  Serious: No
  Sender: FDA-Public Use
  Company Number: US-ABBOTT-11P-163-0858675-00

PATIENT
  Sex: Female
  Weight: 59.02 kg

DRUGS (1)
  1. HUMIRA [Suspect]
     Indication: RHEUMATOID ARTHRITIS
     Dates: start: 20101001

REACTIONS (6)
  - INCORRECT PRODUCT STORAGE [None]
  - DRY SKIN [None]
  - SKIN EXFOLIATION [None]
  - PSORIASIS [None]
  - PAPILLOMA VIRAL INFECTION [None]
  - PRODUCT QUALITY ISSUE [None]
